FAERS Safety Report 10219285 (Version 1)
Quarter: 2014Q2

REPORT INFORMATION
  Report Type: Spontaneous
  Country: NO (occurrence: NO)
  Receive Date: 20140605
  Receipt Date: 20140605
  Transmission Date: 20141212
  Serious: Yes (Other)
  Sender: FDA-Public Use
  Company Number: NO-WATSON-2014-11763

PATIENT
  Age: 55 Year
  Sex: Female

DRUGS (5)
  1. DULOXETINE (UNKNOWN) [Suspect]
     Indication: PAIN IN EXTREMITY
     Dosage: 60 MG, DAILY
     Route: 065
  2. TRAMADOL (UNKNOWN) [Interacting]
     Indication: PAIN IN EXTREMITY
     Dosage: 800 MG, DAILY
     Route: 065
  3. TRAMADOL (UNKNOWN) [Interacting]
     Dosage: 600 MG, DAILY
     Route: 065
  4. TRAMADOL (UNKNOWN) [Interacting]
     Dosage: 100 MG, TID
     Route: 065
  5. CIPROFLOXACIN HYDROCHLORIDE (UNKNOWN) [Interacting]
     Indication: URINARY TRACT INFECTION
     Dosage: UNK
     Route: 065

REACTIONS (3)
  - Serotonin syndrome [Unknown]
  - Drug interaction [Unknown]
  - Overdose [Unknown]
